FAERS Safety Report 4288758-6 (Version None)
Quarter: 2004Q1

REPORT INFORMATION
  Report Type: 
  Country: None (occurrence: None)
  Receive Date: 20040205
  Receipt Date: 20040127
  Transmission Date: 20041129
  Serious: Yes (Death, Other)
  Sender: FDA-Public Use
  Company Number: MX-SHR-03-019472

PATIENT
  Age: 50 Year
  Sex: Female
  Weight: 79 kg

DRUGS (1)
  1. CLARITRAST 240 (IOPROMIDE)N/A [Suspect]
     Indication: SPINAL MYELOGRAM
     Dosage: 20 ML
     Dates: start: 20031223, end: 20031223

REACTIONS (5)
  - ARACHNOIDITIS [None]
  - CARDIO-RESPIRATORY ARREST [None]
  - COMA [None]
  - INTERMITTENT CLAUDICATION [None]
  - PARAESTHESIA [None]
